FAERS Safety Report 5034523-1 (Version None)
Quarter: 2006Q2

REPORT INFORMATION
  Report Type: 
  Country: None (occurrence: None)
  Receive Date: 20060623
  Receipt Date: 20060623
  Transmission Date: 20061013
  Serious: No
  Sender: FDA-Public Use
  Company Number: None

PATIENT
  Sex: Female
  Weight: 68.0396 kg

DRUGS (1)
  1. SULINDAC [Suspect]
     Indication: ANTIINFLAMMATORY THERAPY
     Dates: start: 20060301, end: 20060615

REACTIONS (4)
  - INFLUENZA LIKE ILLNESS [None]
  - PHARMACEUTICAL PRODUCT COMPLAINT [None]
  - RASH [None]
  - THERAPEUTIC PRODUCT CONTAMINATION [None]
